FAERS Safety Report 10009880 (Version 1)
Quarter: 2014Q1

REPORT INFORMATION
  Report Type: Spontaneous
  Country: US (occurrence: US)
  Receive Date: 20140312
  Receipt Date: 20140312
  Transmission Date: 20141002
  Serious: No
  Sender: FDA-Public Use
  Company Number: US-INCYTE CORPORATION-2013IN000438

PATIENT
  Sex: 0

DRUGS (2)
  1. JAKAFI [Suspect]
     Indication: MYELOFIBROSIS
     Dosage: 10 MG, BID
     Dates: start: 2012
  2. GABAPENTIN [Concomitant]

REACTIONS (4)
  - Pyrexia [Unknown]
  - Fatigue [Unknown]
  - Neuropathy peripheral [Unknown]
  - Blood count abnormal [Unknown]
